FAERS Safety Report 8666435 (Version 2)
Quarter: 2014Q4

REPORT INFORMATION
  Report Type: Spontaneous
  Country: US (occurrence: US)
  Receive Date: 20120716
  Receipt Date: 20141030
  Transmission Date: 20150529
  Serious: Yes (Hospitalization, Other)
  Sender: FDA-Public Use
  Company Number: US-GLAXOSMITHKLINE-A0966828A

PATIENT
  Age: 47 Year
  Sex: Female

DRUGS (1)
  1. AVANDIA [Suspect]
     Active Substance: ROSIGLITAZONE MALEATE
     Indication: DIABETES MELLITUS
     Route: 048
     Dates: start: 20040103, end: 20070822

REACTIONS (5)
  - Cardiomyopathy [Unknown]
  - Cardiac failure congestive [Unknown]
  - Coronary artery disease [Unknown]
  - Bundle branch block left [Unknown]
  - Coronary artery disease [Not Recovered/Not Resolved]

NARRATIVE: CASE EVENT DATE: 20090112
